FAERS Safety Report 5004024-5 (Version None)
Quarter: 2006Q2

REPORT INFORMATION
  Report Type: 
  Country: None (occurrence: None)
  Receive Date: 20060517
  Receipt Date: 20060509
  Transmission Date: 20061013
  Serious: Yes (Other)
  Sender: FDA-Public Use
  Company Number: US-JNJFOC-20060304946

PATIENT
  Sex: Female
  Weight: 59.88 kg

DRUGS (35)
  1. REMICADE [Suspect]
     Route: 042
  2. REMICADE [Suspect]
     Route: 042
  3. REMICADE [Suspect]
     Route: 042
  4. REMICADE [Suspect]
     Indication: RHEUMATOID ARTHRITIS
     Dosage: TWO INFUSIONS ON UNSPECIFIED DATES.
     Route: 042
  5. AMIODARONE [Concomitant]
     Dosage: 0.5 TAB QD
     Route: 048
  6. COLACE [Concomitant]
     Route: 048
  7. COUMADIN [Concomitant]
     Dosage: 5 MG QD EXCEPT 7.5 MG MON-FRI
     Route: 048
  8. FOLIC ACID [Concomitant]
     Route: 048
  9. LASIX [Concomitant]
     Route: 048
  10. NORVASC [Concomitant]
     Route: 048
  11. POTASSIUM CHLORIDE [Concomitant]
     Route: 048
  12. PRAVACHOL [Concomitant]
     Dosage: QHS
     Route: 048
  13. PREDNISONE TAB [Concomitant]
     Route: 048
  14. PRENATAL [Concomitant]
     Route: 048
  15. PRENATAL [Concomitant]
     Route: 048
  16. PRENATAL [Concomitant]
     Route: 048
  17. PRENATAL [Concomitant]
     Route: 048
  18. PRENATAL [Concomitant]
     Route: 048
  19. PRENATAL [Concomitant]
     Route: 048
  20. PRENATAL [Concomitant]
     Route: 048
  21. PRENATAL [Concomitant]
     Route: 048
  22. PRENATAL [Concomitant]
     Route: 048
  23. PRENATAL [Concomitant]
     Route: 048
  24. PRENATAL [Concomitant]
     Route: 048
  25. PRENATAL [Concomitant]
     Route: 048
  26. PRENATAL [Concomitant]
     Route: 048
  27. SULFASALAZINE [Concomitant]
     Dosage: 2 TABLES BID
     Route: 048
  28. TOPROL-XL [Concomitant]
  29. TRAMADOL HCL [Concomitant]
     Route: 048
  30. TRAVATAN [Concomitant]
     Dosage: 0.004%; APPLY 1/OU QHS.
     Route: 047
  31. EXTRA STRENGTH TYLENOL [Concomitant]
     Dosage: 25-500 MG;Q HS PRN
     Route: 048
  32. AVAPRO [Concomitant]
     Route: 048
  33. ARANESP [Concomitant]
     Dosage: PRN
     Route: 050
  34. CATAPRES-TTS-2 [Concomitant]
     Route: 062
  35. MILK OF MAGNESIA TAB [Concomitant]
     Route: 048

REACTIONS (1)
  - MALIGNANT MELANOMA [None]
